FAERS Safety Report 12240253 (Version 3)
Quarter: 2016Q3

REPORT INFORMATION
  Report Type: Report from Study
  Country: CA (occurrence: CA)
  Receive Date: 20160405
  Receipt Date: 20160803
  Transmission Date: 20161109
  Serious: No
  Sender: FDA-Public Use
  Company Number: PHHY2014CA077716

PATIENT
  Age: 31 Year
  Sex: Male

DRUGS (1)
  1. SANDOSTATIN LAR DEPOT [Suspect]
     Active Substance: OCTREOTIDE ACETATE
     Indication: ACRAL OVERGROWTH
     Dosage: 30 MG, EVERY 3 WEEKS
     Route: 030
     Dates: start: 20100210

REACTIONS (7)
  - Respiratory rate increased [Unknown]
  - Blood pressure increased [Unknown]
  - Body temperature decreased [Unknown]
  - Panic attack [Unknown]
  - Attention deficit/hyperactivity disorder [Unknown]
  - Inappropriate schedule of drug administration [Unknown]
  - Vomiting [Unknown]

NARRATIVE: CASE EVENT DATE: 20140620
